FAERS Safety Report 18945421 (Version 1)
Quarter: 2021Q1

REPORT INFORMATION
  Report Type: Report from Study
  Country: US (occurrence: US)
  Receive Date: 20210226
  Receipt Date: 20210226
  Transmission Date: 20210420
  Serious: Yes (Hospitalization)
  Sender: FDA-Public Use
  Company Number: US-CELGENEUS-USA-20210205423

PATIENT
  Age: 65 Year
  Sex: Female
  Weight: 77.18 kg

DRUGS (3)
  1. AZACITIDINE. [Suspect]
     Active Substance: AZACITIDINE
     Indication: MYELODYSPLASTIC SYNDROME
     Dosage: 140 MILLIGRAM
     Route: 041
     Dates: start: 20201216, end: 20201218
  2. AZACITIDINE. [Suspect]
     Active Substance: AZACITIDINE
     Indication: ACUTE MYELOID LEUKAEMIA
  3. AZACITIDINE. [Suspect]
     Active Substance: AZACITIDINE
     Indication: TRANSPLANT

REACTIONS (1)
  - Compression fracture [Not Recovered/Not Resolved]

NARRATIVE: CASE EVENT DATE: 20210119
